FAERS Safety Report 19846650 (Version 1)
Quarter: 2021Q3

REPORT INFORMATION
  Report Type: Spontaneous
  Country: US (occurrence: US)
  Receive Date: 20210916
  Receipt Date: 20210916
  Transmission Date: 20211014
  Serious: Yes (Hospitalization)
  Sender: FDA-Public Use
  Company Number: None

PATIENT
  Age: 74 Year
  Sex: Male

DRUGS (1)
  1. DROXIDOPA 300MG ZYDUS PHARMACEUTICALS (USA) [Suspect]
     Active Substance: DROXIDOPA
     Indication: ORTHOSTATIC HYPOTENSION
     Dosage: ?          OTHER DOSE:2 CAPSULES;?
     Route: 048
     Dates: start: 201806

REACTIONS (5)
  - Hallucination [None]
  - Vision blurred [None]
  - Fall [None]
  - Hypertension [None]
  - Decreased activity [None]

NARRATIVE: CASE EVENT DATE: 20210912
